FAERS Safety Report 23794576 (Version 1)
Quarter: 2024Q2

REPORT INFORMATION
  Report Type: Spontaneous
  Country: US (occurrence: US)
  Receive Date: 20240429
  Receipt Date: 20240429
  Transmission Date: 20240715
  Serious: Yes (Other)
  Sender: FDA-Public Use
  Company Number: US-BAXTER-2024BAX017523

PATIENT
  Age: 72 Year
  Sex: Female

DRUGS (8)
  1. DOXORUBICIN [Suspect]
     Active Substance: DOXORUBICIN
     Indication: Liposarcoma
     Dosage: RECEIVED PEGYLATED LIPOSOMAL DOXORUBICIN AT 40 MG/M2 PER CYCLE FOR A CUMULATIVE DOSE OF 1,240 MG/M2
     Route: 065
  2. DOXORUBICIN [Suspect]
     Active Substance: DOXORUBICIN
     Indication: Malignant neoplasm progression
  3. PEMBROLIZUMAB [Concomitant]
     Active Substance: PEMBROLIZUMAB
     Indication: Liposarcoma
     Route: 065
  4. ABEMACICLIB [Concomitant]
     Active Substance: ABEMACICLIB
     Indication: Liposarcoma
     Route: 065
  5. EPACADOSTAT [Concomitant]
     Active Substance: EPACADOSTAT
     Indication: Liposarcoma
     Route: 065
  6. ALENDRONATE [Concomitant]
     Active Substance: ALENDRONATE SODIUM
     Route: 065
  7. AMLODIPINE [Concomitant]
     Active Substance: AMLODIPINE BESYLATE
     Route: 065
  8. LEVOTHYROXINE [Concomitant]
     Active Substance: LEVOTHYROXINE\LEVOTHYROXINE SODIUM
     Route: 065

REACTIONS (4)
  - Renal-limited thrombotic microangiopathy [Unknown]
  - Blood creatinine increased [Recovering/Resolving]
  - Oedema peripheral [Recovered/Resolved]
  - Hypertension [Recovering/Resolving]
